FAERS Safety Report 4642774-0 (Version None)
Quarter: 2005Q2

REPORT INFORMATION
  Report Type: 
  Country: None (occurrence: None)
  Receive Date: 20050420
  Receipt Date: 20050331
  Transmission Date: 20051028
  Serious: Yes (Hospitalization)
  Sender: FDA-Public Use
  Company Number: FR_050105624

PATIENT
  Sex: Female

DRUGS (1)
  1. RALOXIFENE HCL [Suspect]
     Indication: OSTEOPOROSIS
     Dosage: 60 MG/ 1 DAY
     Dates: start: 20020301, end: 20040301

REACTIONS (1)
  - GENITAL DISCHARGE [None]
